FAERS Safety Report 13155662 (Version 1)
Quarter: 2017Q1

REPORT INFORMATION
  Report Type: Spontaneous
  Country: US (occurrence: US)
  Receive Date: 20170126
  Receipt Date: 20170126
  Transmission Date: 20170428
  Serious: No
  Sender: FDA-Public Use
  Company Number: US-ROCHE-GNE319165

PATIENT
  Age: 71 Year
  Sex: Female

DRUGS (2)
  1. ASPIRIN. [Concomitant]
     Active Substance: ASPIRIN
     Indication: PRODUCT USED FOR UNKNOWN INDICATION
  2. CATHFLO ACTIVASE [Suspect]
     Active Substance: ALTEPLASE
     Indication: COMPLICATION ASSOCIATED WITH DEVICE
     Dosage: 2 MG, UNK
     Route: 065
     Dates: start: 20110517

REACTIONS (1)
  - Drug ineffective [Unknown]

NARRATIVE: CASE EVENT DATE: 20110518
